FAERS Safety Report 22829134 (Version 2)
Quarter: 2024Q1

REPORT INFORMATION
  Report Type: Report from Study
  Country: US (occurrence: US)
  Receive Date: 20230816
  Receipt Date: 20240219
  Transmission Date: 20240410
  Serious: No
  Sender: FDA-Public Use
  Company Number: US-AURINIA PHARMACEUTICALS INC.-AUR-003799

PATIENT
  Age: 32 Year
  Sex: Female
  Weight: 70.295 kg

DRUGS (11)
  1. LUPKYNIS [Suspect]
     Active Substance: VOCLOSPORIN
     Indication: Lupus nephritis
     Dosage: 23.7 MILLIGRAM, BID
     Route: 048
     Dates: start: 20230615
  2. LUPKYNIS [Suspect]
     Active Substance: VOCLOSPORIN
     Dosage: 23.7 MILLIGRAM, BID
     Route: 048
  3. LUPKYNIS [Suspect]
     Active Substance: VOCLOSPORIN
     Dosage: 15.8 MILLIGRAM, BID
     Route: 048
  4. LUPKYNIS [Suspect]
     Active Substance: VOCLOSPORIN
     Dosage: 23.7 MILLIGRAM, BID
     Route: 048
  5. LUPKYNIS [Suspect]
     Active Substance: VOCLOSPORIN
     Dosage: 15.8 MILLIGRAM, BID
     Route: 048
     Dates: start: 20230615
  6. ELIQUIS [Concomitant]
     Active Substance: APIXABAN
     Indication: Ovarian cyst
     Dosage: 2.5 MILLIGRAM
  7. MYCOPHENOLATE MOFETIL [Concomitant]
     Active Substance: MYCOPHENOLATE MOFETIL
     Indication: Product used for unknown indication
  8. HYDROXYCHLOROQUINE SULFATE [Concomitant]
     Active Substance: HYDROXYCHLOROQUINE SULFATE
     Indication: Product used for unknown indication
  9. AMITRIPTYLINE [Concomitant]
     Active Substance: AMITRIPTYLINE
     Indication: Product used for unknown indication
  10. DULOXETINE [Concomitant]
     Active Substance: DULOXETINE
     Indication: Product used for unknown indication
  11. MOMETASONE [Concomitant]
     Active Substance: MOMETASONE
     Indication: Product used for unknown indication
     Dosage: UNK

REACTIONS (22)
  - Constipation [Not Recovered/Not Resolved]
  - Gastroenteritis viral [Not Recovered/Not Resolved]
  - Blood urine present [Unknown]
  - Urticaria [Unknown]
  - Intermenstrual bleeding [Not Recovered/Not Resolved]
  - Insomnia [Unknown]
  - Gingival bleeding [Unknown]
  - Gingival erythema [Unknown]
  - Gingival discolouration [Unknown]
  - Skin lesion [Unknown]
  - Drug intolerance [Unknown]
  - Anxiety [Unknown]
  - Depression [Unknown]
  - Dysgeusia [Unknown]
  - Pruritus [Unknown]
  - Abdominal pain upper [Unknown]
  - Fatigue [Unknown]
  - Potentiating drug interaction [Unknown]
  - Infection [Recovering/Resolving]
  - Dry skin [Unknown]
  - Hypotension [Unknown]
  - Dizziness [Unknown]

NARRATIVE: CASE EVENT DATE: 20230807
